FAERS Safety Report 5294683-4 (Version None)
Quarter: 2007Q2

REPORT INFORMATION
  Report Type: 
  Country: None (occurrence: None)
  Receive Date: 20070409
  Receipt Date: 20070409
  Transmission Date: 20071010
  Serious: Yes (Hospitalization)
  Sender: FDA-Public Use
  Company Number: None

PATIENT
  Sex: Female
  Weight: 63.9572 kg

DRUGS (18)
  1. TEMODAR [Suspect]
     Indication: MALIGNANT MELANOMA
     Dosage: 170 MG PO DAILY
     Route: 048
     Dates: start: 20070228, end: 20070306
  2. TEMODAR [Suspect]
     Indication: MALIGNANT MELANOMA
     Dosage: 170 MG PO DAILY
     Route: 048
     Dates: start: 20070314, end: 20070320
  3. TEMODAR [Suspect]
  4. TEMODAR [Suspect]
  5. SUTENT [Suspect]
     Indication: MALIGNANT MELANOMA
     Dosage: 25 MG PO DAILY
     Route: 048
     Dates: start: 20070307, end: 20070327
  6. TRENTAL [Concomitant]
  7. MULTI-VITAMIN [Concomitant]
  8. LUTIEN [Concomitant]
  9. CALCIUM CARBONATE [Concomitant]
  10. VIT D [Concomitant]
  11. TYLENOL [Concomitant]
  12. AMBIEN [Concomitant]
  13. COLACE [Concomitant]
  14. AMOXICILLIN [Concomitant]
  15. COMPAZINE [Concomitant]
  16. ZOFRAN [Concomitant]
  17. PROAIR INHALER [Concomitant]
  18. BENADRYL [Concomitant]

REACTIONS (3)
  - HAEMOGLOBIN DECREASED [None]
  - PLATELET COUNT DECREASED [None]
  - WHITE BLOOD CELL COUNT DECREASED [None]
